FAERS Safety Report 8947762 (Version 1)
Quarter: 2012Q4

REPORT INFORMATION
  Report Type: Spontaneous
  Country: FR (occurrence: None)
  Receive Date: 20121127
  Receipt Date: 20121127
  Transmission Date: 20130627
  Serious: Yes (Other)
  Sender: FDA-Public Use
  Company Number: 1495170

PATIENT
  Age: 62 Year
  Sex: Female

DRUGS (4)
  1. PACLITAXEL [Suspect]
     Indication: BREAST CANCER
     Dosage: (first course)
     Route: 041
     Dates: start: 20120918, end: 20120918
  2. POLARAMINE [Suspect]
     Indication: PREMEDICATION
     Route: 041
     Dates: start: 20120918, end: 20120918
  3. AZANTAC [Suspect]
     Indication: PREMEDICATION
     Route: 041
     Dates: start: 20120918, end: 20120918
  4. METHYLPREDNISOLONE [Suspect]
     Indication: PREMEDICATION
     Dates: start: 20120918, end: 20120918

REACTIONS (3)
  - Bronchospasm [None]
  - Cyanosis [None]
  - Cold sweat [None]
